FAERS Safety Report 6295517-1 (Version None)
Quarter: 2009Q3

REPORT INFORMATION
  Report Type: 
  Country: None (occurrence: None)
  Receive Date: 20090731
  Receipt Date: 20090720
  Transmission Date: 20100115
  Serious: Yes (Hospitalization)
  Sender: FDA-Public Use
  Company Number: 2007AP000428

PATIENT
  Age: 29 Year
  Sex: Female

DRUGS (3)
  1. PAROXETINE HCL [Suspect]
     Indication: INTENTIONAL DRUG MISUSE
  2. PARACETAMOL (PARACETAMOL) [Suspect]
     Indication: INTENTIONAL DRUG MISUSE
     Dosage: 48 G;1X, PO
     Route: 048
  3. CODEINE SUL TAB [Suspect]
     Indication: INTENTIONAL DRUG MISUSE

REACTIONS (5)
  - HEPATIC FUNCTION ABNORMAL [None]
  - HEPATOTOXICITY [None]
  - INTERNATIONAL NORMALISED RATIO INCREASED [None]
  - LIVER DISORDER [None]
  - MULTIPLE DRUG OVERDOSE INTENTIONAL [None]
